FAERS Safety Report 5294597-X (Version None)
Quarter: 2007Q2

REPORT INFORMATION
  Report Type: 
  Country: None (occurrence: None)
  Receive Date: 20070412
  Receipt Date: 20070401
  Transmission Date: 20071010
  Serious: Yes (Hospitalization)
  Sender: FDA-Public Use
  Company Number: PHEH2007US03789

PATIENT

DRUGS (2)
  1. ANTIBIOTICS [Concomitant]
  2. ZELNORM [Suspect]
     Dosage: 20 MG, BID

REACTIONS (4)
  - CHEST PAIN [None]
  - MUSCULOSKELETAL PAIN [None]
  - PNEUMONIA [None]
  - SENSATION OF HEAVINESS [None]
